FAERS Safety Report 4844721-5 (Version None)
Quarter: 2005Q4

REPORT INFORMATION
  Report Type: 
  Country: None (occurrence: None)
  Receive Date: 20051201
  Receipt Date: 20051201
  Transmission Date: 20060501
  Serious: Yes (Death)
  Sender: FDA-Public Use
  Company Number: None

PATIENT
  Age: 20 Year
  Sex: Female
  Weight: 49.8957 kg

DRUGS (1)
  1. ORTHO-NOVUM [Suspect]
     Indication: AMENORRHOEA
     Dosage: DAILY  PO
     Route: 048
     Dates: start: 19990101, end: 20031205

REACTIONS (1)
  - THROMBOSIS [None]
